FAERS Safety Report 5981269-9 (Version None)
Quarter: 2008Q4

REPORT INFORMATION
  Report Type: 
  Country: None (occurrence: None)
  Receive Date: 20081126
  Receipt Date: 20081113
  Transmission Date: 20090506
  Serious: Yes (Other)
  Sender: FDA-Public Use
  Company Number: JPI-P-005462

PATIENT
  Age: 23 Year
  Sex: Female

DRUGS (5)
  1. LUVOX [Suspect]
     Indication: DEPRESSION
     Dosage: 75 MG, 1 D, ORAL, 50 MG, 1 D, ORAL
     Route: 048
     Dates: start: 20081110, end: 20081112
  2. LUVOX [Suspect]
     Indication: DEPRESSION
     Dosage: 75 MG, 1 D, ORAL, 50 MG, 1 D, ORAL
     Route: 048
     Dates: start: 20081113
  3. ETHYL LOFLAZEPATE [Concomitant]
  4. LITHIUM CARBONATE [Concomitant]
  5. DIAZEPAM [Concomitant]

REACTIONS (1)
  - INTENTIONAL SELF-INJURY [None]
